FAERS Safety Report 21299243 (Version 1)
Quarter: 2022Q3

REPORT INFORMATION
  Report Type: Spontaneous
  Country: US (occurrence: None)
  Receive Date: 20220906
  Receipt Date: 20220906
  Transmission Date: 20221026
  Serious: No
  Sender: FDA-Public Use
  Company Number: None

PATIENT

DRUGS (1)
  1. MONSELS [Suspect]
     Active Substance: FERRIC SUBSULFATE

REACTIONS (4)
  - Product label confusion [None]
  - Product label confusion [None]
  - Confusional state [None]
  - Physical product label issue [None]
